FAERS Safety Report 24390366 (Version 1)
Quarter: 2024Q4

REPORT INFORMATION
  Report Type: Report from Study
  Country: CL (occurrence: CL)
  Receive Date: 20241003
  Receipt Date: 20241003
  Transmission Date: 20250115
  Serious: Yes (Other)
  Sender: SANDOZ
  Company Number: CL-SANDOZ-SDZ2024CL083977

PATIENT
  Sex: Male

DRUGS (2)
  1. OMNITROPE [Suspect]
     Active Substance: SOMATROPIN
     Indication: Growth hormone deficiency
     Dosage: 5 MG, 1.5 IU, QD
     Route: 058
     Dates: start: 20210624
  2. OMNITROPE [Suspect]
     Active Substance: SOMATROPIN
     Indication: Neoplasm malignant
     Dosage: 10 MG
     Route: 065

REACTIONS (3)
  - Hypopituitarism [Unknown]
  - Cellulitis [Unknown]
  - Fat redistribution [Unknown]
